FAERS Safety Report 4652585-8 (Version None)
Quarter: 2005Q2

REPORT INFORMATION
  Report Type: 
  Country: None (occurrence: None)
  Receive Date: 20050504
  Receipt Date: 20050426
  Transmission Date: 20051028
  Serious: Yes (Death, Hospitalization)
  Sender: FDA-Public Use
  Company Number: US-JNJFOC-20050406615

PATIENT
  Sex: Male

DRUGS (21)
  1. LEVAQUIN [Suspect]
     Indication: INFECTION
     Route: 049
  2. SPORNOX [Suspect]
     Indication: DRUG USE FOR UNKNOWN INDICATION
     Route: 049
  3. VANCOMYCIN [Concomitant]
     Route: 042
  4. SYNTHROID [Concomitant]
     Route: 049
  5. DOCUSATE [Concomitant]
     Route: 049
  6. ALDACTONE [Concomitant]
     Route: 049
  7. LASIX [Concomitant]
     Route: 049
  8. K-DUR 10 [Concomitant]
     Route: 049
  9. ANTIVERT [Concomitant]
     Route: 049
  10. ANTIVERT [Concomitant]
     Route: 049
  11. LEXAPRO [Concomitant]
     Route: 049
  12. BANCAP [Concomitant]
     Route: 049
  13. BANCAP [Concomitant]
     Route: 049
  14. FLOMAX [Concomitant]
     Route: 049
  15. THALIDOMIDE [Concomitant]
     Route: 049
  16. SKELAXIN [Concomitant]
  17. COMBIVENT [Concomitant]
     Route: 049
  18. COMBIVENT [Concomitant]
     Route: 049
  19. ALBUTEROL [Concomitant]
     Dosage: PRN
  20. STOMATITIS SOLUTION [Concomitant]
  21. GENTAMICIN [Concomitant]

REACTIONS (2)
  - DEATH [None]
  - DRUG INEFFECTIVE [None]
